FAERS Safety Report 14320530 (Version 1)
Quarter: 2017Q4

REPORT INFORMATION
  Report Type: Spontaneous
  Country: US (occurrence: US)
  Receive Date: 20171222
  Receipt Date: 20171222
  Transmission Date: 20180321
  Serious: Yes (Other)
  Sender: FDA-Public Use
  Company Number: None

PATIENT
  Sex: Female
  Weight: 94.5 kg

DRUGS (10)
  1. COQ10 [Concomitant]
     Active Substance: UBIDECARENONE
  2. PROLIA [Suspect]
     Active Substance: DENOSUMAB
     Indication: OSTEOPOROSIS
     Dosage: OTHER FREQUENCY:1 INJECTION;?
     Route: 058
     Dates: start: 20171106
  3. VITAMIN D-2 [Concomitant]
  4. ZOLPIDEM TARTRATE ER [Concomitant]
     Active Substance: ZOLPIDEM TARTRATE
  5. VENTOLIN [Concomitant]
     Active Substance: ALBUTEROL SULFATE
  6. NEXIUM [Concomitant]
     Active Substance: ESOMEPRAZOLE MAGNESIUM
  7. NEBULIZER WITH ALBUTEROL SOLUTION [Concomitant]
  8. SIMVASTATIN. [Concomitant]
     Active Substance: SIMVASTATIN
  9. ADVAIR HFA [Concomitant]
     Active Substance: FLUTICASONE PROPIONATE\SALMETEROL XINAFOATE
  10. CINNAMON. [Concomitant]
     Active Substance: CINNAMON

REACTIONS (7)
  - Oropharyngeal pain [None]
  - Constipation [None]
  - Nausea [None]
  - Renal pain [None]
  - Cystitis [None]
  - Vaginal infection [None]
  - Discomfort [None]

NARRATIVE: CASE EVENT DATE: 20171205
